FAERS Safety Report 24553933 (Version 1)
Quarter: 2024Q4

REPORT INFORMATION
  Report Type: Spontaneous
  Country: AT (occurrence: AT)
  Receive Date: 20241028
  Receipt Date: 20241028
  Transmission Date: 20250114
  Serious: No
  Sender: ROCHE
  Company Number: AT-IPSEN Group, Research and Development-2024-19456

PATIENT
  Sex: Male

DRUGS (3)
  1. NUTROPIN AQ [Suspect]
     Active Substance: SOMATROPIN
     Indication: Empty sella syndrome
     Dosage: STRENGTH: 10MG/2 ML
     Route: 058
  2. EUTHYROX [Concomitant]
     Active Substance: LEVOTHYROXINE SODIUM
     Dosage: 1/2 HOUR BEFORE MEAL
  3. HYDROCORTONE [Concomitant]
     Active Substance: HYDROCORTISONE
     Dosage: POSSIBLY 3/4 IN THE MORNING.

REACTIONS (6)
  - Asthenia [Unknown]
  - Fatigue [Unknown]
  - Product dose omission issue [Unknown]
  - Device defective [Unknown]
  - Product availability issue [Unknown]
  - Expired device used [Unknown]
